FAERS Safety Report 16653060 (Version 2)
Quarter: 2019Q3

REPORT INFORMATION
  Report Type: Spontaneous
  Country: US (occurrence: US)
  Receive Date: 20190731
  Receipt Date: 20190909
  Transmission Date: 20191004
  Serious: No
  Sender: FDA-Public Use
  Company Number: US-ASTRAZENECA-2019SF05625

PATIENT
  Age: 95 Year
  Sex: Male
  Weight: 72.6 kg

DRUGS (17)
  1. METOPROLOL. [Suspect]
     Active Substance: METOPROLOL
     Dosage: 25.0MG UNKNOWN
     Route: 065
  2. ASPIRIN. [Concomitant]
     Active Substance: ASPIRIN
  3. VITAMIN B12 [Concomitant]
     Active Substance: CYANOCOBALAMIN
  4. LISINOPRIL. [Suspect]
     Active Substance: LISINOPRIL
     Route: 048
  5. NORTRIPTYLINE [Concomitant]
     Active Substance: NORTRIPTYLINE
  6. CALCITRIOL. [Concomitant]
     Active Substance: CALCITRIOL
  7. SYMBICORT [Suspect]
     Active Substance: BUDESONIDE\FORMOTEROL FUMARATE DIHYDRATE
     Indication: CHRONIC OBSTRUCTIVE PULMONARY DISEASE
     Dosage: 160/4.5 MCG 120 2 PUFFS TWICE A DAY
     Route: 055
  8. OMEPRAZOLE. [Suspect]
     Active Substance: OMEPRAZOLE
     Indication: OESOPHAGEAL ULCER
     Route: 048
  9. VITAMIN D3 [Concomitant]
     Active Substance: CHOLECALCIFEROL
  10. ACETAMINOPHEN. [Concomitant]
     Active Substance: ACETAMINOPHEN
  11. ATORVASTATIN [Concomitant]
     Active Substance: ATORVASTATIN
  12. BREO ELLIPTA [Concomitant]
     Active Substance: FLUTICASONE FUROATE\VILANTEROL TRIFENATATE
  13. GABAPENTIN. [Concomitant]
     Active Substance: GABAPENTIN
  14. LATANOPROST. [Concomitant]
     Active Substance: LATANOPROST
     Indication: GLAUCOMA
  15. CYCLOSPORINE. [Concomitant]
     Active Substance: CYCLOSPORINE
  16. PROVENTIL [Concomitant]
     Active Substance: ALBUTEROL
  17. CLOPIDOGREL [Concomitant]
     Active Substance: CLOPIDOGREL BISULFATE

REACTIONS (14)
  - Feeling abnormal [Unknown]
  - Device malfunction [Unknown]
  - Body height decreased [Unknown]
  - Chronic obstructive pulmonary disease [Unknown]
  - Oesophageal disorder [Unknown]
  - Dyspnoea [Unknown]
  - Bone disorder [Unknown]
  - Pulmonary congestion [Unknown]
  - Wrong technique in device usage process [Unknown]
  - Back pain [Unknown]
  - Intentional device misuse [Unknown]
  - Asthenia [Unknown]
  - Product dose omission [Unknown]
  - Incorrect dose administered by device [Not Recovered/Not Resolved]
